FAERS Safety Report 14983832 (Version 1)
Quarter: 2018Q2

REPORT INFORMATION
  Report Type: Spontaneous
  Country: US (occurrence: US)
  Receive Date: 20180607
  Receipt Date: 20180607
  Transmission Date: 20180711
  Serious: Yes (Other)
  Sender: FDA-Public Use
  Company Number: US-JNJFOC-20180604144

PATIENT
  Age: 44 Year
  Sex: Female

DRUGS (1)
  1. INVOKANA [Suspect]
     Active Substance: CANAGLIFLOZIN
     Indication: TYPE 2 DIABETES MELLITUS
     Route: 048
     Dates: start: 20140922

REACTIONS (3)
  - Skin ulcer [Unknown]
  - Limb amputation [Recovering/Resolving]
  - Osteomyelitis [Unknown]

NARRATIVE: CASE EVENT DATE: 20151117
